FAERS Safety Report 6725249-4 (Version None)
Quarter: 2010Q2

REPORT INFORMATION
  Report Type: 
  Country: None (occurrence: None)
  Receive Date: 20100514
  Receipt Date: 20100505
  Transmission Date: 20101027
  Serious: Yes (Hospitalization)
  Sender: FDA-Public Use
  Company Number: US-SANOFI-AVENTIS-2010SA024828

PATIENT
  Age: 70 Year
  Sex: Female

DRUGS (6)
  1. MULTAQ [Suspect]
     Indication: ATRIAL FIBRILLATION
     Route: 048
     Dates: end: 20100401
  2. COUMADIN [Concomitant]
  3. ATENOLOL [Concomitant]
  4. NORVASC [Concomitant]
  5. ALTACE [Concomitant]
  6. DIGOXIN [Concomitant]

REACTIONS (3)
  - CARDIAC FAILURE [None]
  - HYPONATRAEMIA [None]
  - PULMONARY OEDEMA [None]
